FAERS Safety Report 8866901 (Version 1)
Quarter: 2012Q4

REPORT INFORMATION
  Report Type: 
  Country: US (occurrence: US)
  Receive Date: 20121025
  Receipt Date: 20121025
  Transmission Date: 20130627
  Serious: No
  Sender: FDA-Public Use
  Company Number: US-AMGEN-USASP2012014108

PATIENT
  Sex: Female

DRUGS (8)
  1. ENBREL [Suspect]
     Indication: PRODUCT USED FOR UNKNOWN INDICATION
     Dosage: 25 mg, 2 times/wk
     Route: 058
  2. SINGULAIR [Concomitant]
     Dosage: 10 mg, UNK
  3. METHOTREXATE [Concomitant]
     Dosage: 2.5 mg, UNK
  4. TOVIAZ [Concomitant]
     Dosage: 4 mg, UNK
  5. VALTREX [Concomitant]
     Dosage: 500 mg, UNK
  6. NEXIUM                             /01479302/ [Concomitant]
     Dosage: 20 mg, UNK
  7. MOBIC [Concomitant]
     Dosage: 7.5 mg, UNK
  8. FOLIC ACID [Concomitant]

REACTIONS (1)
  - Injection site bruising [Unknown]
